FAERS Safety Report 4681105-7 (Version None)
Quarter: 2005Q2

REPORT INFORMATION
  Report Type: 
  Country: None (occurrence: None)
  Receive Date: 20050603
  Receipt Date: 20050520
  Transmission Date: 20051028
  Serious: Yes (Hospitalization)
  Sender: FDA-Public Use
  Company Number: JP-MERCK-0505USA03382

PATIENT
  Age: 63 Year
  Sex: Male

DRUGS (1)
  1. PEPCID RPD [Suspect]
     Indication: REFLUX OESOPHAGITIS
     Route: 048
     Dates: start: 20030101, end: 20050501

REACTIONS (1)
  - HAEMOGLOBIN DECREASED [None]
